FAERS Safety Report 7776725-7 (Version None)
Quarter: 2011Q3

REPORT INFORMATION
  Report Type: 
  Country: None (occurrence: None)
  Receive Date: 20110926
  Receipt Date: 20110317
  Transmission Date: 20111222
  Serious: Yes (Other)
  Sender: FDA-Public Use
  Company Number: CA-BAYER-2011-024313

PATIENT
  Age: 36 Year
  Sex: Male

DRUGS (3)
  1. TYLENOL-500 [Concomitant]
  2. VITAMIN D [Concomitant]
  3. BETASERON [Suspect]
     Dosage: 2 MIU, QOD

REACTIONS (7)
  - HEADACHE [None]
  - BACK PAIN [None]
  - MUSCLE SPASMS [None]
  - PAIN IN EXTREMITY [None]
  - PARAESTHESIA [None]
  - ARTHRALGIA [None]
  - MYALGIA [None]
